FAERS Safety Report 4988627-X (Version None)
Quarter: 2006Q2

REPORT INFORMATION
  Report Type: 
  Country: None (occurrence: None)
  Receive Date: 20060502
  Receipt Date: 20060421
  Transmission Date: 20061013
  Serious: Yes (Other)
  Sender: FDA-Public Use
  Company Number: US-ROCHE-445600

PATIENT
  Age: 8 Year
  Sex: Male

DRUGS (1)
  1. ROCEPHIN [Suspect]
     Indication: DRUG USE FOR UNKNOWN INDICATION
     Route: 030

REACTIONS (1)
  - AUTISM [None]
